FAERS Safety Report 23681389 (Version 1)
Quarter: 2024Q1

REPORT INFORMATION
  Report Type: Spontaneous
  Country: US (occurrence: US)
  Receive Date: 20240328
  Receipt Date: 20240328
  Transmission Date: 20240410
  Serious: Yes (Other)
  Sender: FDA-Public Use
  Company Number: US-AMGEN-USASP2024062309

PATIENT
  Sex: Female

DRUGS (3)
  1. OTEZLA [Suspect]
     Active Substance: APREMILAST
     Indication: Psoriatic arthropathy
     Dosage: 30 MILLIGRAM, BID
     Route: 048
     Dates: start: 20220614
  2. COTEMPLA XR-ODT [Concomitant]
     Active Substance: METHYLPHENIDATE
     Dosage: 8.6 MILLIGRAM
  3. TIZANIDINE [Concomitant]
     Active Substance: TIZANIDINE
     Dosage: 4 MILLIGRAM

REACTIONS (3)
  - Psoriatic arthropathy [Recovering/Resolving]
  - Product dose omission issue [Unknown]
  - Sinus disorder [Unknown]
